FAERS Safety Report 12926119 (Version 1)
Quarter: 2016Q4

REPORT INFORMATION
  Report Type: Spontaneous
  Country: US (occurrence: US)
  Receive Date: 20161108
  Receipt Date: 20161108
  Transmission Date: 20170207
  Serious: No
  Sender: FDA-Public Use
  Company Number: US-SA-2016SA172318

PATIENT
  Sex: Female

DRUGS (18)
  1. JANUMET [Concomitant]
     Active Substance: METFORMIN HYDROCHLORIDE\SITAGLIPTIN PHOSPHATE
     Dosage: 100-1000
  2. OPANA ER [Concomitant]
     Active Substance: OXYMORPHONE HYDROCHLORIDE
  3. LYRICA [Concomitant]
     Active Substance: PREGABALIN
  4. PREDNISOLONE. [Concomitant]
     Active Substance: PREDNISOLONE
  5. VENTOLIN [Concomitant]
     Active Substance: ALBUTEROL SULFATE
     Dosage: HFA AER
  6. GABAPENTIN. [Concomitant]
     Active Substance: GABAPENTIN
  7. PRALUENT [Suspect]
     Active Substance: ALIROCUMAB
     Route: 058
  8. FAMCICLOVIR. [Concomitant]
     Active Substance: FAMCICLOVIR
  9. LEVOTHYROXINE. [Concomitant]
     Active Substance: LEVOTHYROXINE
  10. OPANA [Concomitant]
     Active Substance: OXYMORPHONE HYDROCHLORIDE
  11. TAMSULOSIN [Concomitant]
     Active Substance: TAMSULOSIN
  12. VASCEPA [Concomitant]
     Active Substance: ICOSAPENT ETHYL
  13. ASMANEX [Concomitant]
     Active Substance: MOMETASONE FUROATE
     Dosage: AER 220MCG
  14. CLONAZEPAM. [Concomitant]
     Active Substance: CLONAZEPAM
  15. CRESTOR [Concomitant]
     Active Substance: ROSUVASTATIN CALCIUM
  16. AZITHROMYCIN ANHYDROUS. [Concomitant]
     Active Substance: AZITHROMYCIN ANHYDROUS
  17. LEVOTHYROXINE. [Concomitant]
     Active Substance: LEVOTHYROXINE
  18. TOPIRAMATE. [Concomitant]
     Active Substance: TOPIRAMATE

REACTIONS (1)
  - Hyperhidrosis [Unknown]
